FAERS Safety Report 7765335-3 (Version None)
Quarter: 2011Q3

REPORT INFORMATION
  Report Type: 
  Country: None (occurrence: None)
  Receive Date: 20110921
  Receipt Date: 20110906
  Transmission Date: 20111222
  Serious: Yes (Other)
  Sender: FDA-Public Use
  Company Number: US-BAYER-2011-084223

PATIENT
  Age: 88 Year
  Sex: Female
  Weight: 54 kg

DRUGS (3)
  1. ASPIRIN [Suspect]
     Indication: ISCHAEMIC HEART DISEASE PROPHYLAXIS
     Dosage: 2 DF, ONCE
     Route: 048
     Dates: start: 20110904, end: 20110905
  2. PEPCID [Concomitant]
  3. CRESTOR [Concomitant]

REACTIONS (1)
  - EPISTAXIS [None]
